FAERS Safety Report 4704054-4 (Version None)
Quarter: 2005Q2

REPORT INFORMATION
  Report Type: 
  Country: None (occurrence: None)
  Receive Date: 20050628
  Receipt Date: 20050622
  Transmission Date: 20051028
  Serious: Yes (Disabling, Other)
  Sender: FDA-Public Use
  Company Number: US_0506118887

PATIENT
  Sex: Female

DRUGS (1)
  1. EVISTA [Suspect]
     Dates: end: 20000425

REACTIONS (12)
  - ARTHRITIS [None]
  - BODY HEIGHT DECREASED [None]
  - CONDITION AGGRAVATED [None]
  - DEMENTIA ALZHEIMER'S TYPE [None]
  - DIVERTICULITIS [None]
  - ENDOCRINE DISORDER [None]
  - GASTRIC DISORDER [None]
  - HYPOACUSIS [None]
  - KNEE ARTHROPLASTY [None]
  - KYPHOSIS [None]
  - OSTEOPOROSIS [None]
  - SPINAL FRACTURE [None]
